FAERS Safety Report 5958498-3 (Version None)
Quarter: 2008Q4

REPORT INFORMATION
  Report Type: 
  Country: None (occurrence: None)
  Receive Date: 20081119
  Receipt Date: 20081110
  Transmission Date: 20090506
  Serious: Yes (Hospitalization)
  Sender: FDA-Public Use
  Company Number: PHHY2008DE27964

PATIENT
  Sex: Male

DRUGS (12)
  1. LEPONEX [Suspect]
     Indication: SCHIZOPHRENIA
     Dosage: 12.5 MG DAILY
     Route: 048
     Dates: start: 20080310, end: 20080311
  2. LEPONEX [Suspect]
     Dosage: 25 MG DAILY
     Route: 048
     Dates: start: 20080312, end: 20080313
  3. LEPONEX [Suspect]
     Dosage: 50 MG DAILY
     Route: 048
     Dates: start: 20080314
  4. LEPONEX [Suspect]
     Dosage: 75 - 350 MG DAILY
     Route: 048
     Dates: start: 20080315, end: 20080326
  5. ZYPREXA [Suspect]
     Dosage: 30 MG DAILY
     Route: 048
     Dates: start: 20080218, end: 20080314
  6. ZYPREXA [Suspect]
     Dosage: 20 MG DAILY
     Route: 048
     Dates: start: 20080315, end: 20080316
  7. ZYPREXA [Suspect]
     Dosage: 10 MG DAILY
     Route: 048
     Dates: start: 20080317, end: 20080325
  8. HALDOL [Concomitant]
     Dosage: 10 MG DAILY
     Route: 048
     Dates: start: 20080218, end: 20080314
  9. LORAZEPAM [Concomitant]
     Dosage: 2 MG DAILY
     Route: 048
     Dates: start: 20080228, end: 20080229
  10. LORAZEPAM [Concomitant]
     Dosage: 4 MG DAILY
     Route: 048
     Dates: start: 20080301, end: 20080310
  11. LORAZEPAM [Concomitant]
     Dosage: 3 MG DAILY
     Route: 048
     Dates: start: 20080311, end: 20080316
  12. AKINETON [Concomitant]
     Dosage: 2 MG DAILY
     Route: 048
     Dates: start: 20080218, end: 20080327

REACTIONS (9)
  - ALANINE AMINOTRANSFERASE INCREASED [None]
  - BLOOD CHOLESTEROL INCREASED [None]
  - BLOOD TRIGLYCERIDES INCREASED [None]
  - GAMMA-GLUTAMYLTRANSFERASE INCREASED [None]
  - GLYCOSYLATED HAEMOGLOBIN INCREASED [None]
  - HEPATIC ENZYME INCREASED [None]
  - HYPERGLYCAEMIA [None]
  - HYPOLIPIDAEMIA [None]
  - WEIGHT INCREASED [None]
